FAERS Safety Report 8814926 (Version 1)
Quarter: 2012Q4

REPORT INFORMATION
  Report Type: 
  Country: US (occurrence: US)
  Receive Date: 20120928
  Receipt Date: 20120928
  Transmission Date: 20130627
  Serious: No
  Sender: FDA-Public Use
  Company Number: US-ASTRAZENECA-2012SE72283

PATIENT
  Age: 28 Year
  Sex: Female
  Weight: 81.6 kg

DRUGS (2)
  1. SEROQUEL XR [Suspect]
     Indication: BIPOLAR DISORDER
     Route: 048
  2. CLONAZAPINE [Concomitant]
     Indication: PANIC ATTACK
     Dosage: 0.5 MG DAILY DOSE TID
     Route: 048

REACTIONS (7)
  - Insomnia [Unknown]
  - Feeling jittery [Unknown]
  - Nausea [Unknown]
  - Restless legs syndrome [Unknown]
  - Panic attack [Unknown]
  - Withdrawal syndrome [Unknown]
  - Drug dose omission [Unknown]
